FAERS Safety Report 25213567 (Version 1)
Quarter: 2025Q2

REPORT INFORMATION
  Report Type: Spontaneous
  Country: US (occurrence: None)
  Receive Date: 20250417
  Receipt Date: 20250417
  Transmission Date: 20250716
  Serious: No
  Sender: FDA-CTU
  Company Number: None

PATIENT
  Age: 37 Year
  Sex: Male

DRUGS (1)
  1. DAPSONE [Suspect]
     Active Substance: DAPSONE
     Dosage: FREQUENCY : DAILY;?
     Route: 048

REACTIONS (5)
  - Methaemoglobinaemia [None]
  - Dyspnoea [None]
  - Faeces discoloured [None]
  - Oxygen saturation decreased [None]
  - Pneumonia [None]

NARRATIVE: CASE EVENT DATE: 20240328
